FAERS Safety Report 6943515-4 (Version None)
Quarter: 2010Q3

REPORT INFORMATION
  Report Type: 
  Country: None (occurrence: None)
  Receive Date: 20100826
  Receipt Date: 20100812
  Transmission Date: 20110219
  Serious: Yes (Hospitalization, Other)
  Sender: FDA-Public Use
  Company Number: US-ELI_LILLY_AND_COMPANY-US201005006629

PATIENT
  Sex: Female

DRUGS (14)
  1. FORTEO [Suspect]
     Indication: OSTEOPOROSIS
     Dosage: 20 UG, DAILY (1/D)
     Dates: start: 20100426
  2. LYRICA [Concomitant]
     Dosage: 100 MG, 3/D
  3. PREDNISONE [Concomitant]
     Dosage: 5 MG, DAILY (1/D)
  4. MTX [Concomitant]
     Dosage: 10 D/F, WEEKLY (1/W)
  5. PREVACID [Concomitant]
  6. PRAVACHOL [Concomitant]
  7. LASIX [Concomitant]
     Dosage: 40 MG, DAILY (1/D)
  8. CARDURA [Concomitant]
  9. DIOVAN [Concomitant]
  10. CALAN [Concomitant]
  11. ALBUTEROL [Concomitant]
  12. FLONASE [Concomitant]
  13. GLIPIZIDE [Concomitant]
  14. MYTUSSIN [Concomitant]

REACTIONS (1)
  - FLUID RETENTION [None]
